FAERS Safety Report 11104058 (Version 2)
Quarter: 2015Q3

REPORT INFORMATION
  Report Type: Report from Study
  Country: US (occurrence: US)
  Receive Date: 20150511
  Receipt Date: 20150717
  Transmission Date: 20151125
  Serious: Yes (Hospitalization, Other)
  Sender: FDA-Public Use
  Company Number: US-BAYER-2014-165366

PATIENT
  Age: 80 Year
  Sex: Female

DRUGS (5)
  1. ADEMPAS [Suspect]
     Active Substance: RIOCIGUAT
     Indication: PULMONARY ARTERIAL HYPERTENSION
     Dosage: 2 MG, TID
     Route: 048
  2. ADEMPAS [Suspect]
     Active Substance: RIOCIGUAT
     Indication: PULMONARY ARTERIAL HYPERTENSION
     Dosage: 1.5 MG, TID
     Route: 048
  3. ADEMPAS [Suspect]
     Active Substance: RIOCIGUAT
     Indication: PULMONARY ARTERIAL HYPERTENSION
     Dosage: 1.5 MG, TID
     Route: 048
  4. ADEMPAS [Suspect]
     Active Substance: RIOCIGUAT
     Indication: PULMONARY ARTERIAL HYPERTENSION
     Dosage: 1 MG, TID
     Route: 048
     Dates: start: 20141020
  5. ADEMPAS [Suspect]
     Active Substance: RIOCIGUAT
     Indication: PULMONARY ARTERIAL HYPERTENSION
     Dosage: 2.5 MG, TID
     Route: 048

REACTIONS (28)
  - Blood pressure decreased [None]
  - Headache [None]
  - Anxiety [Unknown]
  - Asthenia [Unknown]
  - Fall [None]
  - Crying [None]
  - Treatment noncompliance [Unknown]
  - Back pain [Unknown]
  - Depressed mood [Unknown]
  - Rectal haemorrhage [None]
  - Rectal haemorrhage [None]
  - Malaise [None]
  - Peripheral swelling [None]
  - Chest discomfort [None]
  - Arthralgia [None]
  - Hypoaesthesia [None]
  - Dyspnoea [None]
  - Dizziness [None]
  - Fatigue [None]
  - Chest pain [Unknown]
  - Constipation [Unknown]
  - Depression [Unknown]
  - Hospitalisation [None]
  - Chest discomfort [Unknown]
  - Weight increased [None]
  - Post-traumatic pain [Unknown]
  - Anxiety [None]
  - Hypotension [None]

NARRATIVE: CASE EVENT DATE: 20150206
